FAERS Safety Report 18257565 (Version 1)
Quarter: 2020Q3

REPORT INFORMATION
  Report Type: Report from Study
  Country: None (occurrence: US)
  Receive Date: 20200911
  Receipt Date: 20200911
  Transmission Date: 20201103
  Serious: Yes (Hospitalization)
  Sender: FDA-Public Use
  Company Number: US-ABBVIE-20K-163-3484863-00

PATIENT
  Age: 63 Year
  Sex: Female
  Weight: 108.96 kg

DRUGS (2)
  1. HUMIRA [Suspect]
     Active Substance: ADALIMUMAB
     Indication: PSORIATIC ARTHROPATHY
     Dosage: CITRATE FREE
     Route: 058
     Dates: start: 20200401, end: 202007
  2. WATER PILL [Concomitant]
     Active Substance: UNSPECIFIED INGREDIENT
     Indication: PRODUCT USED FOR UNKNOWN INDICATION

REACTIONS (12)
  - Pneumonia [Recovered/Resolved]
  - Fluid retention [Recovered/Resolved]
  - White blood cell count increased [Recovered/Resolved]
  - Asthenia [Not Recovered/Not Resolved]
  - Restless legs syndrome [Recovered/Resolved]
  - Pain in extremity [Not Recovered/Not Resolved]
  - Sepsis [Recovered/Resolved]
  - Staphylococcal infection [Recovered/Resolved]
  - Nosocomial infection [Recovering/Resolving]
  - Fluid retention [Not Recovered/Not Resolved]
  - Pain [Recovered/Resolved]
  - Peripheral swelling [Recovered/Resolved]

NARRATIVE: CASE EVENT DATE: 202006
